FAERS Safety Report 7274775-0 (Version None)
Quarter: 2011Q1

REPORT INFORMATION
  Report Type: 
  Country: None (occurrence: None)
  Receive Date: 20110128
  Receipt Date: 20110112
  Transmission Date: 20110831
  Serious: Yes (Other)
  Sender: FDA-Public Use
  Company Number: 20100005031

PATIENT
  Age: 83 Year
  Sex: Female
  Weight: 46.6 kg

DRUGS (3)
  1. OXYCONTIN [Concomitant]
  2. LOXONIN (LOXOPROFEN SODIUM) [Concomitant]
  3. ERLOTINIB HYDROCHLORIDE [Suspect]
     Indication: LUNG ADENOCARCINOMA
     Dosage: 50 MG, QD, ORAL
     Route: 048
     Dates: start: 20090717, end: 20100228

REACTIONS (6)
  - CARDIAC FAILURE ACUTE [None]
  - ANGINA PECTORIS [None]
  - CONSTIPATION [None]
  - NAUSEA [None]
  - DIARRHOEA [None]
  - GASTRITIS [None]
